FAERS Safety Report 10934334 (Version 1)
Quarter: 2015Q1

REPORT INFORMATION
  Report Type: Spontaneous
  Country: US (occurrence: US)
  Receive Date: 20150320
  Receipt Date: 20150320
  Transmission Date: 20150721
  Serious: No
  Sender: FDA-Public Use
  Company Number: US-009507513-1502USA009025

PATIENT
  Weight: 104.31 kg

DRUGS (2)
  1. ALBUTEROL. [Concomitant]
     Active Substance: ALBUTEROL
     Dosage: UNK
  2. NUVARING [Suspect]
     Active Substance: ETHINYL ESTRADIOL\ETONOGESTREL
     Indication: CONTRACEPTION
     Dosage: AS PER THE PRESCRIBING INFORMATION
     Route: 067

REACTIONS (4)
  - Device expulsion [Unknown]
  - No adverse event [Unknown]
  - Poor quality drug administered [Unknown]
  - Product quality issue [Unknown]
